FAERS Safety Report 16880601 (Version 1)
Quarter: 2019Q4

REPORT INFORMATION
  Report Type: Spontaneous
  Country: US (occurrence: US)
  Receive Date: 20191003
  Receipt Date: 20191003
  Transmission Date: 20200122
  Serious: No
  Sender: FDA-Public Use
  Company Number: US-TEVA-2019-US-1115800

PATIENT
  Sex: Female

DRUGS (1)
  1. MUPIROCIN OINTMENT [Suspect]
     Active Substance: MUPIROCIN
     Indication: PROPHYLAXIS
     Route: 065
     Dates: start: 20190925, end: 20190925

REACTIONS (3)
  - Product prescribing error [Unknown]
  - Incorrect route of product administration [Unknown]
  - Nasal discomfort [Unknown]

NARRATIVE: CASE EVENT DATE: 20190925
